FAERS Safety Report 18790452 (Version 1)
Quarter: 2021Q1

REPORT INFORMATION
  Report Type: Spontaneous
  Country: US (occurrence: US)
  Receive Date: 20210126
  Receipt Date: 20210126
  Transmission Date: 20210419
  Serious: Yes (Death, Other)
  Sender: FDA-Public Use
  Company Number: US-PURDUE-USA-2020-0200321

PATIENT
  Sex: Male

DRUGS (1)
  1. OXYCONTIN [Suspect]
     Active Substance: OXYCODONE HYDROCHLORIDE
     Indication: PRODUCT USED FOR UNKNOWN INDICATION
     Dosage: UNK
     Route: 048

REACTIONS (17)
  - Muscular weakness [Unknown]
  - Depression [Unknown]
  - Abnormal behaviour [Unknown]
  - Cyanosis [Unknown]
  - Drug dependence [Unknown]
  - Respiratory depression [Unknown]
  - Abdominal distension [Unknown]
  - Amnesia [Unknown]
  - Arteriosclerosis [Fatal]
  - Weight increased [Unknown]
  - Dizziness [Unknown]
  - Somnolence [Unknown]
  - Fatigue [Unknown]
  - Urinary retention [Unknown]
  - Dysuria [Unknown]
  - Confusional state [Unknown]
  - Constipation [Unknown]

NARRATIVE: CASE EVENT DATE: 20160927
